FAERS Safety Report 7157732-4 (Version None)
Quarter: 2010Q4

REPORT INFORMATION
  Report Type: 
  Country: None (occurrence: None)
  Receive Date: 20101214
  Receipt Date: 20100201
  Transmission Date: 20110411
  Serious: No
  Sender: FDA-Public Use
  Company Number: US-ASTRAZENECA-2010SE04454

PATIENT
  Sex: Female

DRUGS (1)
  1. CRESTOR [Suspect]
     Route: 048
     Dates: start: 20091107, end: 20091130

REACTIONS (5)
  - ARTHRALGIA [None]
  - ASTHENIA [None]
  - MYALGIA [None]
  - OEDEMA PERIPHERAL [None]
  - PULMONARY CONGESTION [None]
